FAERS Safety Report 8009592-7 (Version None)
Quarter: 2011Q4

REPORT INFORMATION
  Report Type: 
  Country: None (occurrence: None)
  Receive Date: 20111228
  Receipt Date: 20110726
  Transmission Date: 20120403
  Serious: Yes (Hospitalization)
  Sender: FDA-Public Use
  Company Number: PHHY2011BE102319

PATIENT
  Sex: Male

DRUGS (2)
  1. VALIUM [Concomitant]
     Dosage: UNK
     Dates: start: 20110801
  2. EXTAVIA [Suspect]
     Indication: MULTIPLE SCLEROSIS
     Dosage: UNK
     Dates: start: 20100317

REACTIONS (3)
  - PNEUMONIA [None]
  - ABASIA [None]
  - MALAISE [None]
